FAERS Safety Report 9006508 (Version 2)
Quarter: 2013Q3

REPORT INFORMATION
  Report Type: Spontaneous
  Country: US (occurrence: US)
  Receive Date: 20130110
  Receipt Date: 20130725
  Transmission Date: 20140515
  Serious: Yes (Hospitalization)
  Sender: FDA-Public Use
  Company Number: US-JNJFOC-20130100207

PATIENT
  Age: 53 Year
  Sex: Male
  Weight: 82.1 kg

DRUGS (14)
  1. RISPERDAL [Suspect]
     Indication: PRODUCT USED FOR UNKNOWN INDICATION
     Route: 048
  2. CLOZAPINE [Interacting]
     Indication: AGGRESSION
     Route: 048
  3. CLOZAPINE [Interacting]
     Indication: AGGRESSION
     Dosage: NDC- 003780860
     Route: 048
     Dates: start: 20120912, end: 20120925
  4. CLOZAPINE [Interacting]
     Indication: AGITATION
     Route: 048
  5. CLOZAPINE [Interacting]
     Indication: AGITATION
     Dosage: NDC- 003780860
     Route: 048
     Dates: start: 20120912, end: 20120925
  6. CLONAZEPAM [Interacting]
     Indication: PRODUCT USED FOR UNKNOWN INDICATION
     Route: 065
  7. FLUTICASONE [Concomitant]
     Route: 065
  8. PAROXAT [Concomitant]
     Route: 065
  9. OXYBUTYNIN [Concomitant]
     Route: 065
  10. VITAMIN E (TOCOPHERYL ACETATE) [Concomitant]
     Route: 065
  11. LAMOTRIGINE [Concomitant]
     Route: 065
  12. CLORAZEPATE DIPOTASSIUM [Concomitant]
     Route: 065
  13. PROPRANOLOL [Concomitant]
     Route: 065
  14. VITAMIN D [Concomitant]
     Route: 065

REACTIONS (5)
  - Drug interaction [Unknown]
  - Confusional state [Recovered/Resolved]
  - Ataxia [Recovered/Resolved]
  - Urinary tract infection [Unknown]
  - Sedation [Recovered/Resolved]
